FAERS Safety Report 15827743 (Version 1)
Quarter: 2019Q1

REPORT INFORMATION
  Report Type: Spontaneous
  Country: US (occurrence: US)
  Receive Date: 20190115
  Receipt Date: 20190115
  Transmission Date: 20190417
  Serious: Yes (Life-Threatening)
  Sender: FDA-Public Use
  Company Number: US-FRESENIUS KABI-FK201900479

PATIENT
  Sex: Female

DRUGS (3)
  1. GANCICLOVIR FOR INJECTION (MANUFACTURER UNKNOWN) [Suspect]
     Active Substance: GANCICLOVIR
     Indication: CYTOMEGALOVIRUS INFECTION
     Route: 065
  2. FOSCARNET [Suspect]
     Active Substance: FOSCARNET
     Indication: CYTOMEGALOVIRUS INFECTION
     Route: 065
  3. IMMUNOGLOBULIN CYTOMEGALOVIRUS [Concomitant]
     Active Substance: HUMAN CYTOMEGALOVIRUS IMMUNE GLOBULIN
     Indication: CYTOMEGALOVIRUS INFECTION
     Route: 065

REACTIONS (1)
  - Renal failure [Unknown]
